FAERS Safety Report 5848699-7 (Version None)
Quarter: 2008Q3

REPORT INFORMATION
  Report Type: 
  Country: None (occurrence: None)
  Receive Date: 20080814
  Receipt Date: 20080801
  Transmission Date: 20090109
  Serious: Yes (Hospitalization)
  Sender: FDA-Public Use
  Company Number: 237313J08USA

PATIENT
  Age: 62 Year
  Sex: Female

DRUGS (3)
  1. REBIF [Suspect]
     Indication: MULTIPLE SCLEROSIS
     Dosage: 44 MCG, 3 IN 1 WEEKS, SUBCUTANEOUS
     Route: 058
     Dates: start: 20030605
  2. ANTIANXIETY PILL (ANTIDEPRESSANTS) [Concomitant]
  3. DIURETIC PILL (DIURETICS) [Concomitant]

REACTIONS (12)
  - ACTIVITIES OF DAILY LIVING IMPAIRED [None]
  - AMNESIA [None]
  - BRONCHITIS [None]
  - COGNITIVE DISORDER [None]
  - DYSARTHRIA [None]
  - DYSGRAPHIA [None]
  - FATIGUE [None]
  - GAIT DISTURBANCE [None]
  - INJECTION SITE ERYTHEMA [None]
  - PNEUMONIA [None]
  - URINARY INCONTINENCE [None]
  - URINARY TRACT INFECTION [None]
